FAERS Safety Report 20640284 (Version 1)
Quarter: 2022Q1

REPORT INFORMATION
  Report Type: Report from Study
  Country: FR (occurrence: FR)
  Receive Date: 20220327
  Receipt Date: 20220327
  Transmission Date: 20220423
  Serious: Yes (Hospitalization)
  Sender: FDA-Public Use
  Company Number: FR-SA-2017SA188287

PATIENT
  Age: 59 Year
  Sex: Male
  Weight: 71 kg

DRUGS (20)
  1. ISATUXIMAB [Suspect]
     Active Substance: ISATUXIMAB
     Indication: Plasma cell myeloma
     Dosage: 10 MG/KG,QW
     Route: 042
     Dates: start: 20170929, end: 20170929
  2. POMALIDOMIDE [Suspect]
     Active Substance: POMALIDOMIDE
     Indication: Plasma cell myeloma
     Dosage: 4 MG,QD
     Route: 048
     Dates: start: 20170929, end: 20171012
  3. DEXAMETHASONE [Suspect]
     Active Substance: DEXAMETHASONE
     Indication: Plasma cell myeloma
     Dosage: UNK UNK, UNK
     Route: 065
     Dates: start: 20170929, end: 20170929
  4. RANITIDINE [Concomitant]
     Active Substance: RANITIDINE
     Indication: Prophylaxis
     Dosage: 50 MG,1X
     Route: 042
     Dates: start: 20171013, end: 20171013
  5. FENTANYL [Concomitant]
     Active Substance: FENTANYL
     Dosage: UNK UNK,UNK
     Route: 062
     Dates: start: 20170918, end: 20171020
  6. LEVOTHYROXINE [Concomitant]
     Active Substance: LEVOTHYROXINE
     Dosage: UNK UNK,UNK
     Route: 048
     Dates: start: 1998
  7. ESOMEPRAZOLE SODIUM [Concomitant]
     Active Substance: ESOMEPRAZOLE SODIUM
     Indication: Prophylaxis
     Dosage: UNK UNK,UNK
     Route: 048
     Dates: start: 20170929
  8. BACTRIM [Concomitant]
     Active Substance: SULFAMETHOXAZOLE\TRIMETHOPRIM
     Indication: Prophylaxis
     Dosage: UNK UNK,UNK
     Route: 048
     Dates: start: 20170929, end: 20180608
  9. VALACYCLOVIR HYDROCHLORIDE [Concomitant]
     Active Substance: VALACYCLOVIR HYDROCHLORIDE
     Indication: Prophylaxis
     Dosage: UNK UNK,UNK
     Route: 048
     Dates: start: 20170929
  10. LEUCOVORIN CALCIUM [Concomitant]
     Active Substance: LEUCOVORIN CALCIUM
     Indication: Prophylaxis
     Dosage: UNK UNK,UNK
     Route: 048
     Dates: start: 20170929
  11. PENICILLIN V [Concomitant]
     Active Substance: PENICILLIN V
     Indication: Prophylaxis
     Dosage: UNK UNK,UNK
     Route: 048
     Dates: start: 20170929
  12. ACETAMINOPHEN [Concomitant]
     Active Substance: ACETAMINOPHEN
     Dosage: UNK UNK,UNK
     Route: 048
     Dates: start: 20170929, end: 20171027
  13. AUGMENTIN [Concomitant]
     Active Substance: AMOXICILLIN\CLAVULANATE POTASSIUM
     Dosage: UNK UNK, UNK
     Route: 048
     Dates: start: 20171003, end: 20171010
  14. GLICLAZIDE [Concomitant]
     Active Substance: GLICLAZIDE
     Dosage: UNK UNK,UNK
     Route: 048
     Dates: start: 20171013, end: 20171124
  15. DEXCHLORPHENIRAMINE MALEATE [Concomitant]
     Active Substance: DEXCHLORPHENIRAMINE MALEATE
     Dosage: 5 MG
     Route: 042
     Dates: start: 20170929, end: 20170929
  16. ALKALINE [Concomitant]
     Dosage: UNK
     Route: 042
     Dates: start: 20170929, end: 20170929
  17. SODIUM CHLORIDE [Concomitant]
     Active Substance: SODIUM CHLORIDE
     Dosage: 1 L
     Route: 042
     Dates: start: 20170927, end: 20170927
  18. ACUPAN [Concomitant]
     Active Substance: NEFOPAM HYDROCHLORIDE
     Dosage: UNK
     Route: 048
     Dates: start: 20170929, end: 20170929
  19. POTASSIUM CHLORIDE [Concomitant]
     Active Substance: POTASSIUM CHLORIDE
     Dosage: UNK
     Route: 048
     Dates: start: 20170929, end: 20170929
  20. AREDIA [Concomitant]
     Active Substance: PAMIDRONATE DISODIUM
     Dosage: UNK
     Route: 042
     Dates: start: 20170928, end: 20170928

REACTIONS (3)
  - Ear, nose and throat infection [Recovered/Resolved]
  - Infusion related reaction [Recovered/Resolved]
  - Dyspnoea [Recovered/Resolved]

NARRATIVE: CASE EVENT DATE: 20170929
